FAERS Safety Report 21890426 (Version 2)
Quarter: 2023Q1

REPORT INFORMATION
  Report Type: Spontaneous
  Country: US (occurrence: US)
  Receive Date: 20230120
  Receipt Date: 20230126
  Transmission Date: 20230418
  Serious: No
  Sender: FDA-Public Use
  Company Number: US-JNJFOC-20230121887

PATIENT
  Age: 59 Year
  Sex: Female
  Weight: 52.664 kg

DRUGS (2)
  1. TREMFYA [Suspect]
     Active Substance: GUSELKUMAB
     Indication: Psoriasis
     Route: 058
  2. TREMFYA [Suspect]
     Active Substance: GUSELKUMAB

REACTIONS (8)
  - Needle issue [Unknown]
  - Psoriasis [Unknown]
  - Accidental exposure to product [Unknown]
  - Underdose [Unknown]
  - Injection site haemorrhage [Unknown]
  - Stress [Unknown]
  - Product dose omission issue [Unknown]
  - Off label use [Unknown]

NARRATIVE: CASE EVENT DATE: 20230109
